FAERS Safety Report 18572244 (Version 25)
Quarter: 2025Q4

REPORT INFORMATION
  Report Type: Report from Study
  Country: CO (occurrence: CO)
  Receive Date: 20201202
  Receipt Date: 20251027
  Transmission Date: 20260118
  Serious: Yes (Other)
  Sender: TAKEDA
  Company Number: CO-TAKEDA-2020TUS041278

PATIENT
  Age: 37 Year
  Sex: Female
  Weight: 66 kg

DRUGS (2)
  1. VEDOLIZUMAB [Suspect]
     Active Substance: VEDOLIZUMAB
     Indication: Colitis ulcerative
     Dosage: 300 MILLIGRAM
  2. VEDOLIZUMAB [Suspect]
     Active Substance: VEDOLIZUMAB
     Dosage: 300 MILLIGRAM

REACTIONS (24)
  - Haematochezia [Recovering/Resolving]
  - Cataract [Recovering/Resolving]
  - Colitis [Recovering/Resolving]
  - Pain [Recovered/Resolved]
  - Discouragement [Recovering/Resolving]
  - Headache [Recovered/Resolved]
  - Inappropriate schedule of product administration [Unknown]
  - Cough [Not Recovered/Not Resolved]
  - Haemoglobin abnormal [Not Recovered/Not Resolved]
  - Weight increased [Unknown]
  - Inflammation [Not Recovered/Not Resolved]
  - Feeling abnormal [Not Recovered/Not Resolved]
  - Frequent bowel movements [Recovering/Resolving]
  - Large intestine polyp [Recovering/Resolving]
  - Product availability issue [Unknown]
  - Treatment noncompliance [Unknown]
  - Neck pain [Unknown]
  - Dyspnoea [Recovered/Resolved]
  - Abdominal pain [Recovering/Resolving]
  - Dizziness [Recovered/Resolved]
  - Arthralgia [Unknown]
  - Back pain [Unknown]
  - Pyrexia [Recovered/Resolved]
  - Influenza [Recovered/Resolved]

NARRATIVE: CASE EVENT DATE: 20200924
